FAERS Safety Report 6148191-9 (Version None)
Quarter: 2009Q2

REPORT INFORMATION
  Report Type: 
  Country: None (occurrence: None)
  Receive Date: 20090408
  Receipt Date: 20090326
  Transmission Date: 20091009
  Serious: Yes (Hospitalization)
  Sender: FDA-Public Use
  Company Number: IT-ROCHE-624185

PATIENT
  Sex: Female
  Weight: 73 kg

DRUGS (2)
  1. CAPECITABINE [Suspect]
     Indication: BREAST CANCER
     Dosage: 2075 MH BID/DAY 1-14 EVERY 3 WEEKS
     Route: 048
     Dates: start: 20080829, end: 20081204
  2. ALDOMET [Concomitant]

REACTIONS (2)
  - DIABETIC COMA [None]
  - DIARRHOEA [None]
